FAERS Safety Report 12846573 (Version 1)
Quarter: 2016Q4

REPORT INFORMATION
  Report Type: Spontaneous
  Country: US (occurrence: US)
  Receive Date: 20161014
  Receipt Date: 20161014
  Transmission Date: 20170207
  Serious: Yes (Hospitalization, Other)
  Sender: FDA-Public Use
  Company Number: US-ALVOGEN-2016-ALVOGEN-029296

PATIENT
  Age: 61 Year
  Sex: Female

DRUGS (3)
  1. ACETYLCYSTEINE. [Suspect]
     Active Substance: ACETYLCYSTEINE
  2. ACETYLCYSTEINE. [Suspect]
     Active Substance: ACETYLCYSTEINE
     Indication: TOXICITY TO VARIOUS AGENTS
  3. ACETYLCYSTEINE. [Suspect]
     Active Substance: ACETYLCYSTEINE
     Indication: TOXICITY TO VARIOUS AGENTS
     Route: 042

REACTIONS (2)
  - Fanconi syndrome acquired [Unknown]
  - Hypotension [Recovered/Resolved]
